FAERS Safety Report 25385942 (Version 1)
Quarter: 2025Q2

REPORT INFORMATION
  Report Type: Spontaneous
  Country: GB (occurrence: None)
  Receive Date: 20250531
  Receipt Date: 20250531
  Transmission Date: 20250716
  Serious: Yes (Hospitalization)
  Sender: FDA-CTU
  Company Number: None

PATIENT
  Age: 62 Year
  Sex: Female
  Weight: 63 kg

DRUGS (1)
  1. PROZAC [Suspect]
     Active Substance: FLUOXETINE HYDROCHLORIDE
     Indication: Post-traumatic stress disorder
     Route: 048
     Dates: start: 20011220

REACTIONS (11)
  - Migraine [None]
  - Withdrawal syndrome [None]
  - Heart rate increased [None]
  - Photophobia [None]
  - Hyperacusis [None]
  - Insomnia [None]
  - Tearfulness [None]
  - Psychomotor hyperactivity [None]
  - Therapy change [None]
  - Decreased appetite [None]
  - Mental disorder [None]

NARRATIVE: CASE EVENT DATE: 20220404
